FAERS Safety Report 16976024 (Version 1)
Quarter: 2019Q4

REPORT INFORMATION
  Report Type: Spontaneous
  Country: AT (occurrence: AT)
  Receive Date: 20191030
  Receipt Date: 20191030
  Transmission Date: 20200122
  Serious: Yes (Other)
  Sender: FDA-Public Use
  Company Number: AT-ANIPHARMA-2019-AT-000016

PATIENT
  Age: 81 Year
  Sex: Male
  Weight: 65 kg

DRUGS (10)
  1. ACETOLYT [Concomitant]
     Dosage: 1 ML DAILY
     Route: 065
  2. THROMBO ASS [Suspect]
     Active Substance: ASPIRIN
     Dosage: 1 DF DAILY / 1 DF DAILY
  3. NEBILAN [Suspect]
     Active Substance: NEBIVOLOL HYDROCHLORIDE
     Dosage: .5 DF DAILY
     Route: 065
     Dates: start: 2015
  4. CANDESARTAN. [Suspect]
     Active Substance: CANDESARTAN
     Indication: PRODUCT USED FOR UNKNOWN INDICATION
     Dosage: .5 DF DAILY / DOSE TEXT: 0.5 - 0 - 0.5
     Route: 048
  5. THYREX [Suspect]
     Active Substance: LEVOTHYROXINE SODIUM
     Dosage: 50 UG/INHAL DAILY
     Route: 065
  6. SUCRALFATE. [Concomitant]
     Active Substance: SUCRALFATE
     Dosage: 1-1-1-1 DF
     Route: 065
     Dates: start: 201908
  7. GLICLADA [Suspect]
     Active Substance: GLICLAZIDE
     Dosage: 3 DF DAILY / 3 DF DAILY
     Route: 065
  8. PANTOLOC [Concomitant]
     Active Substance: PANTOPRAZOLE SODIUM
     Dosage: 2 DF DAILY / 1 DF DAILY
     Route: 065
     Dates: start: 201908
  9. ALLOPURINOL. [Suspect]
     Active Substance: ALLOPURINOL
     Dosage: 1 DF DAILY
     Route: 065
     Dates: start: 2015
  10. SIMVASTATIN. [Concomitant]
     Active Substance: SIMVASTATIN
     Dosage: 1 DF DAILY
     Route: 065
     Dates: start: 2015

REACTIONS (7)
  - Visual impairment [Unknown]
  - Dyspnoea [Unknown]
  - Pyrexia [Unknown]
  - Cough [Unknown]
  - Neoplasm prostate [Unknown]
  - Constipation [Unknown]
  - Night sweats [Unknown]

NARRATIVE: CASE EVENT DATE: 2015
